FAERS Safety Report 7794702-7 (Version None)
Quarter: 2011Q4

REPORT INFORMATION
  Report Type: 
  Country: None (occurrence: None)
  Receive Date: 20111004
  Receipt Date: 20110923
  Transmission Date: 20120403
  Serious: Yes (Death, Other)
  Sender: FDA-Public Use
  Company Number: US-BAYER-201038562NA

PATIENT
  Age: 34 Year
  Sex: Female
  Weight: 77 kg

DRUGS (27)
  1. YASMIN [Suspect]
     Dosage: UNK
     Dates: start: 20050902, end: 20081121
  2. SYNTHROID [Concomitant]
     Dosage: UNK
     Dates: start: 19980101
  3. LEVOPHED [Concomitant]
  4. RED BLOOD CELLS [Concomitant]
  5. NAPROXEN (ALEVE) [Concomitant]
     Dosage: UNK UNK, QD
  6. VALTREX [Concomitant]
     Dosage: 500 MG, QD
  7. MEROPENEM [Concomitant]
  8. VANCOMYCIN [Concomitant]
  9. EPINEPHRINE [Concomitant]
  10. DOBUTAMINE HCL [Concomitant]
  11. DROSPIRENONE AND ETHINYL ESTRADIOL [Suspect]
     Dosage: UNK
     Dates: start: 20050902, end: 20081121
  12. MAXALT [Concomitant]
     Indication: MIGRAINE
  13. ZOLOFT [Concomitant]
     Dosage: 100 MG, QD
  14. FLUCONAZOLE [Concomitant]
  15. NSAID'S [Concomitant]
  16. LISINOPRIL [Concomitant]
     Dosage: 20 MG, QD
  17. PENICILLIN VK [Concomitant]
     Dosage: 500 MG, UNK
  18. CALCIUM CARBONATE [Concomitant]
     Indication: HYPOCALCAEMIA
  19. FLAGYL [Concomitant]
  20. METRONIDAZOLE [Concomitant]
  21. VASOPRESSIN [Concomitant]
  22. SUCROSE [Concomitant]
  23. PHENYLEPHRINE HCL [Concomitant]
  24. PLASMA [Concomitant]
  25. AMBIEN [Concomitant]
     Dosage: 5 MG, QD
  26. IMODIUM [Concomitant]
     Indication: DIARRHOEA
  27. PEPCID [Concomitant]
     Indication: UPPER GASTROINTESTINAL HAEMORRHAGE

REACTIONS (5)
  - KLEBSIELLA SEPSIS [None]
  - SEPSIS [None]
  - INTESTINAL STENOSIS [None]
  - THROMBOSIS [None]
  - COLITIS ISCHAEMIC [None]
